FAERS Safety Report 6136623-1 (Version None)
Quarter: 2009Q1

REPORT INFORMATION
  Report Type: 
  Country: None (occurrence: None)
  Receive Date: 20090330
  Receipt Date: 20090323
  Transmission Date: 20090719
  Serious: Yes (Congenital Anomaly)
  Sender: FDA-Public Use
  Company Number: A0747580A

PATIENT
  Sex: Female

DRUGS (1)
  1. PAXIL [Suspect]
     Indication: DEPRESSION
     Dosage: 20MG PER DAY
     Dates: start: 20001001, end: 20011201

REACTIONS (4)
  - DRUG EXPOSURE DURING PREGNANCY [None]
  - LIPOMENINGOCELE [None]
  - SPINA BIFIDA [None]
  - SYRINGOMYELIA [None]
